FAERS Safety Report 6706078-4 (Version None)
Quarter: 2010Q2

REPORT INFORMATION
  Report Type: 
  Country: None (occurrence: None)
  Receive Date: 20100430
  Receipt Date: 20100430
  Transmission Date: 20101027
  Serious: Yes (Disabling)
  Sender: FDA-Public Use
  Company Number: None

PATIENT
  Sex: Female
  Weight: 63.5036 kg

DRUGS (2)
  1. ARTICAINE 4% SEPTODONT [Suspect]
     Indication: DENTAL OPERATION
     Dosage: 3.4ML ARTICAINE 4% ONCE SUBCUTANEOUS INTRAORAL 047
     Route: 058
     Dates: start: 20100408
  2. ARTICAINE 4% SEPTODONT [Suspect]
     Indication: LOCAL ANAESTHESIA
     Dosage: 3.4ML ARTICAINE 4% ONCE SUBCUTANEOUS INTRAORAL 047
     Route: 058
     Dates: start: 20100408

REACTIONS (4)
  - AGEUSIA [None]
  - ANOSMIA [None]
  - HYPOGEUSIA [None]
  - PAROSMIA [None]
